FAERS Safety Report 6291989-7 (Version None)
Quarter: 2009Q3

REPORT INFORMATION
  Report Type: 
  Country: None (occurrence: None)
  Receive Date: 20090729
  Receipt Date: 20090714
  Transmission Date: 20100115
  Serious: Yes (Hospitalization)
  Sender: FDA-Public Use
  Company Number: JPI-P-007926

PATIENT
  Age: 57 Year
  Sex: Female
  Weight: 60.782 kg

DRUGS (11)
  1. XYREM [Suspect]
     Indication: BACK PAIN
     Dosage: 6 GM (3 GM, 2 IN 1 D), ORAL
     Route: 048
     Dates: start: 20090706, end: 20090706
  2. MORPHINE SULPHATE (SUSTAINED-RELEASE TABLET) [Suspect]
     Indication: PAIN MANAGEMENT
     Dosage: 135 MG (45 MG, 3 IN 1 D), ORAL
     Route: 048
     Dates: start: 20070701
  3. NALOXONE [Suspect]
     Indication: DEPRESSED LEVEL OF CONSCIOUSNESS
  4. NALOXONE [Suspect]
     Indication: HYPOVENTILATION
  5. MEMANTINE (PILL) [Concomitant]
  6. TRAZODONE (PILL) [Concomitant]
  7. ESTRADIOL (PILL) [Concomitant]
  8. DULOXETINE (PILL) [Concomitant]
  9. ATOMOXETINE (PILL) [Concomitant]
  10. HYDROCODONE [Concomitant]
  11. METHOCARBAMOL [Concomitant]

REACTIONS (6)
  - CONVULSION [None]
  - DEPRESSED LEVEL OF CONSCIOUSNESS [None]
  - DIZZINESS [None]
  - HYPOVENTILATION [None]
  - LETHARGY [None]
  - NIGHTMARE [None]
